FAERS Safety Report 7301313-6 (Version None)
Quarter: 2011Q1

REPORT INFORMATION
  Report Type: 
  Country: None (occurrence: None)
  Receive Date: 20110113
  Receipt Date: 20100201
  Transmission Date: 20110831
  Serious: Yes (Death)
  Sender: FDA-Public Use
  Company Number: KV200900445

PATIENT
  Age: 44 Year
  Sex: Female

DRUGS (6)
  1. OXYCODONE HYDROCHLORIDE [Suspect]
     Indication: NECK PAIN
     Dosage: 30 MG, EVERY 4 TO 6 H, ORAL
     Route: 048
     Dates: start: 20081229, end: 20081201
  2. SYNTHROID [Concomitant]
  3. ALPRAZOLAM [Concomitant]
  4. SOMA [Concomitant]
  5. LORAZEPAM [Concomitant]
  6. HYDROCODONE BITARTRATE AND ACETAMINOPHEN (HYDROCODONE BITARTRATE, PARA [Concomitant]

REACTIONS (1)
  - ACCIDENTAL OVERDOSE [None]
